FAERS Safety Report 13170318 (Version 2)
Quarter: 2017Q1

REPORT INFORMATION
  Report Type: Report from Study
  Country: AR (occurrence: AR)
  Receive Date: 20170131
  Receipt Date: 20170207
  Transmission Date: 20170428
  Serious: Yes (Other)
  Sender: FDA-Public Use
  Company Number: PHHY2017AR013748

PATIENT
  Sex: Male

DRUGS (2)
  1. DIOVAN [Suspect]
     Active Substance: VALSARTAN
     Indication: CARDIAC DISORDER
     Dosage: (SPLIT THE TABLET UNDER MEDICAL INDICATION)
     Route: 065
  2. DIOVAN [Suspect]
     Active Substance: VALSARTAN
     Indication: HYPERTENSION
     Dosage: 1 DF, QD
     Route: 065

REACTIONS (6)
  - Blood pressure increased [Unknown]
  - Sleep apnoea syndrome [Unknown]
  - Drug prescribing error [Unknown]
  - Product use issue [Unknown]
  - Wrong technique in product usage process [Unknown]
  - Chronic obstructive pulmonary disease [Unknown]
